FAERS Safety Report 5547390-4 (Version None)
Quarter: 2007Q4

REPORT INFORMATION
  Report Type: 
  Country: None (occurrence: None)
  Receive Date: 20071211
  Receipt Date: 20071129
  Transmission Date: 20080405
  Serious: Yes (Other)
  Sender: FDA-Public Use
  Company Number: DE-PFIZER INC-2007102792

PATIENT
  Sex: Male

DRUGS (1)
  1. CHAMPIX [Suspect]
     Route: 048

REACTIONS (3)
  - ARTERIOSPASM CORONARY [None]
  - BRADYCARDIA [None]
  - CORONARY ARTERY DISEASE [None]
